FAERS Safety Report 5548401-2 (Version None)
Quarter: 2007Q4

REPORT INFORMATION
  Report Type: 
  Country: None (occurrence: None)
  Receive Date: 20071211
  Receipt Date: 20070406
  Transmission Date: 20080405
  Serious: No
  Sender: FDA-Public Use
  Company Number: US-AMGEN-KDL211311

PATIENT
  Sex: Male
  Weight: 54.5 kg

DRUGS (1)
  1. ENBREL [Suspect]
     Indication: PSORIASIS
     Route: 058
     Dates: start: 20050306

REACTIONS (3)
  - ALANINE AMINOTRANSFERASE INCREASED [None]
  - CHALAZION [None]
  - CYST [None]
